FAERS Safety Report 6228791-8 (Version None)
Quarter: 2009Q2

REPORT INFORMATION
  Report Type: 
  Country: None (occurrence: None)
  Receive Date: 20090615
  Receipt Date: 20090323
  Transmission Date: 20091009
  Serious: Yes (Other)
  Sender: FDA-Public Use
  Company Number: US-PFIZER INC-2009190396

PATIENT
  Sex: Female
  Weight: 68.027 kg

DRUGS (2)
  1. DETROL LA [Suspect]
     Indication: HYPERTONIC BLADDER
     Dosage: UNK
     Route: 048
     Dates: start: 20090216, end: 20090323
  2. TYLENOL (CAPLET) [Concomitant]
     Indication: INSOMNIA
     Dosage: UNK

REACTIONS (2)
  - HAEMORRHAGE [None]
  - MEDICATION ERROR [None]
